FAERS Safety Report 17543937 (Version 1)
Quarter: 2020Q1

REPORT INFORMATION
  Report Type: Spontaneous
  Country: IT (occurrence: IT)
  Receive Date: 20200316
  Receipt Date: 20200316
  Transmission Date: 20200409
  Serious: Yes (Hospitalization)
  Sender: FDA-Public Use
  Company Number: IT-TEVA-2020-IT-1199407

PATIENT
  Age: 21 Year
  Sex: Male
  Weight: 74 kg

DRUGS (3)
  1. CISPLATINO ACCORD HEALTHCARE ITALIA [Suspect]
     Active Substance: CISPLATIN
     Indication: TESTIS CANCER
     Dosage: 33 MG
     Route: 042
     Dates: start: 20200115, end: 20200205
  2. ETOPOSIDE. [Suspect]
     Active Substance: ETOPOSIDE
     Indication: TESTIS CANCER
     Dosage: 100 MG
     Route: 042
     Dates: start: 20200115, end: 20200205
  3. HOLOXAN [Suspect]
     Active Substance: IFOSFAMIDE
     Indication: TESTIS CANCER
     Dosage: 4875 MG
     Route: 042
     Dates: start: 20200115, end: 20200205

REACTIONS (3)
  - Neutropenia [Recovering/Resolving]
  - Hypertransaminasaemia [Recovering/Resolving]
  - Nausea [Recovering/Resolving]

NARRATIVE: CASE EVENT DATE: 20200205
